FAERS Safety Report 8609219-7 (Version None)
Quarter: 2012Q3

REPORT INFORMATION
  Report Type: 
  Country: None (occurrence: None)
  Receive Date: 20120808
  Receipt Date: 20120724
  Transmission Date: 20120928
  Serious: Yes (Other)
  Sender: FDA-Public Use
  Company Number: 2012MA009514

PATIENT
  Age: 50 Year
  Sex: Female

DRUGS (5)
  1. RISPERIDONE [Concomitant]
  2. TRAMADOL HCL [Suspect]
     Indication: PRODUCT USED FOR UNKNOWN INDICATION
  3. PAROXETINE HCL [Suspect]
     Indication: DEPRESSION
     Dates: start: 20010601
  4. PAROXETINE HCL [Suspect]
     Indication: PRODUCT USED FOR UNKNOWN INDICATION
     Dates: start: 20010601
  5. ZOPICLONE [Concomitant]

REACTIONS (10)
  - PSYCHOMOTOR HYPERACTIVITY [None]
  - ANXIETY [None]
  - HYPERHIDROSIS [None]
  - OVERDOSE [None]
  - MANIA [None]
  - NERVOUS SYSTEM DISORDER [None]
  - ANGER [None]
  - MOOD ALTERED [None]
  - DEPRESSION [None]
  - DRUG ABUSE [None]
